FAERS Safety Report 9444209 (Version 1)
Quarter: 2013Q3

REPORT INFORMATION
  Report Type: Spontaneous
  Country: US (occurrence: None)
  Receive Date: 20130806
  Receipt Date: 20130806
  Transmission Date: 20140515
  Serious: Yes (Life-Threatening, Hospitalization, Other)
  Sender: FDA-Public Use
  Company Number: None

PATIENT
  Age: 53 Year
  Sex: Female
  Weight: 80.74 kg

DRUGS (1)
  1. NABUMETONE [Suspect]
     Indication: ARTHRALGIA
     Dosage: 1 TWICE DAILY
     Dates: start: 20130623

REACTIONS (2)
  - Hypersensitivity [None]
  - Myocardial infarction [None]
